FAERS Safety Report 11127559 (Version 1)
Quarter: 2015Q2

REPORT INFORMATION
  Report Type: Spontaneous
  Country: US (occurrence: None)
  Receive Date: 20150520
  Receipt Date: 20150520
  Transmission Date: 20150821
  Serious: Yes (Other)
  Sender: FDA-Public Use
  Company Number: None

PATIENT
  Age: 52 Year
  Sex: Male

DRUGS (12)
  1. METHYLPHENIDATE (RITALIN SR) [Concomitant]
  2. POLYETHILENE [Concomitant]
  3. FAMOTIDINE (PEPCID) [Concomitant]
  4. OLANZAPINE (ZYPREXA) [Concomitant]
  5. AMPYRA [Suspect]
     Active Substance: DALFAMPRIDINE
     Indication: MULTIPLE SCLEROSIS
     Route: 048
     Dates: start: 201102
  6. DOCUSATE SODIUM (COLACE) [Concomitant]
  7. SUMATRIPTAN (IMITREX) [Concomitant]
  8. SIMVASTATIN (ZOCOR) [Concomitant]
  9. PREDNISOLONE (SOLUMEDROL) [Concomitant]
  10. CHLORTHEXIDINE GLUCONATE (HIBICLENS) [Concomitant]
  11. GLUCOL (MIRALAX) [Concomitant]
  12. OXYBUTYNIN (DITROPAN) [Concomitant]

REACTIONS (3)
  - Urinary tract infection [None]
  - Staphylococcus test [None]
  - Culture positive [None]

NARRATIVE: CASE EVENT DATE: 20150401
